FAERS Safety Report 23526967 (Version 2)
Quarter: 2024Q2

REPORT INFORMATION
  Report Type: Spontaneous
  Country: DE (occurrence: DE)
  Receive Date: 20240215
  Receipt Date: 20240410
  Transmission Date: 20240716
  Serious: Yes (Other)
  Sender: FDA-Public Use
  Company Number: DE-TEVA-VS-3157617

PATIENT
  Sex: Female

DRUGS (5)
  1. NIFEDIPINE [Suspect]
     Active Substance: NIFEDIPINE
     Indication: Product used for unknown indication
     Dosage: 1 AT MIDDAY + 1 AT NIGHT
     Route: 065
  2. CLONIDINE [Suspect]
     Active Substance: CLONIDINE
     Indication: Hypertension
     Route: 065
  3. INDAPAMIDE [Concomitant]
     Active Substance: INDAPAMIDE
     Indication: Product used for unknown indication
     Route: 065
  4. PERINDOPRIL [Concomitant]
     Active Substance: PERINDOPRIL
     Indication: Product used for unknown indication
     Route: 065
  5. MOXONIDINE [Suspect]
     Active Substance: MOXONIDINE
     Indication: Product used for unknown indication
     Dosage: 1 IN THE MORNING AND 1 IN THE EVENING
     Route: 065

REACTIONS (13)
  - Blood pressure abnormal [Unknown]
  - Nausea [Unknown]
  - Product availability issue [Unknown]
  - Vomiting [Unknown]
  - Gastrointestinal disorder [Unknown]
  - Somnolence [Unknown]
  - Peripheral swelling [Unknown]
  - Eye swelling [Unknown]
  - Erythema [Unknown]
  - Tension [Unknown]
  - Fatigue [Unknown]
  - Arthralgia [Unknown]
  - Adverse drug reaction [Unknown]
